FAERS Safety Report 5242013-6 (Version None)
Quarter: 2007Q1

REPORT INFORMATION
  Report Type: 
  Country: None (occurrence: None)
  Receive Date: 20070220
  Receipt Date: 20070208
  Transmission Date: 20070707
  Serious: Yes (Hospitalization, Other)
  Sender: FDA-Public Use
  Company Number: DE-PFIZER INC-2006144068

PATIENT
  Sex: Female
  Weight: 66 kg

DRUGS (2)
  1. MEDROXYPROGESTERONE ACETATE [Suspect]
     Indication: CONTRACEPTION
     Dosage: FREQ:FIRST INJECTION
     Route: 030
     Dates: start: 20030416, end: 20030416
  2. MEDROXYPROGESTERONE ACETATE [Suspect]
     Dosage: FREQ:MOST RECENT INJECTION
     Route: 030
     Dates: start: 20060901, end: 20060901

REACTIONS (4)
  - DEAFNESS [None]
  - EUSTACHIAN TUBE DISORDER [None]
  - MASTOIDITIS [None]
  - OTITIS MEDIA [None]
